APPROVED DRUG PRODUCT: FLUOXETINE HYDROCHLORIDE
Active Ingredient: FLUOXETINE HYDROCHLORIDE
Strength: EQ 10MG BASE
Dosage Form/Route: TABLET;ORAL
Application: A211696 | Product #001
Applicant: SOMERSET THERAPEUTICS LLC
Approved: Jan 30, 2019 | RLD: No | RS: No | Type: DISCN